FAERS Safety Report 24897898 (Version 3)
Quarter: 2025Q2

REPORT INFORMATION
  Report Type: Report from Study
  Country: US (occurrence: US)
  Receive Date: 20250129
  Receipt Date: 20250410
  Transmission Date: 20250717
  Serious: Yes (Hospitalization, Other)
  Sender: ABBVIE
  Company Number: US-ABBVIE-6105697

PATIENT
  Age: 87 Year
  Sex: Female

DRUGS (1)
  1. SKYRIZI [Suspect]
     Active Substance: RISANKIZUMAB-RZAA
     Indication: Psoriasis
     Route: 058
     Dates: start: 20231001

REACTIONS (4)
  - Oedema peripheral [Unknown]
  - COVID-19 [Unknown]
  - Peripheral swelling [Unknown]
  - Psoriasis [Unknown]

NARRATIVE: CASE EVENT DATE: 20250101
